FAERS Safety Report 19604492 (Version 4)
Quarter: 2021Q4

REPORT INFORMATION
  Report Type: Report from Study
  Country: US (occurrence: US)
  Receive Date: 20210723
  Receipt Date: 20211013
  Transmission Date: 20220303
  Serious: No
  Sender: FDA-Public Use
  Company Number: NVSC2021US158223

PATIENT
  Age: 69 Year
  Sex: Male

DRUGS (3)
  1. TASIGNA [Suspect]
     Active Substance: NILOTINIB
     Indication: Chronic myeloid leukaemia
     Dosage: 150 MG, Q6H
     Route: 048
     Dates: start: 20210601
  2. TASIGNA [Suspect]
     Active Substance: NILOTINIB
     Dosage: 300 MG, QD
     Route: 048
     Dates: start: 20210630
  3. TASIGNA [Suspect]
     Active Substance: NILOTINIB
     Dosage: 150 MG, Q6H
     Route: 048
     Dates: start: 202106

REACTIONS (12)
  - Blood test abnormal [Unknown]
  - Hyperglycaemia [Recovered/Resolved]
  - Rash [Recovering/Resolving]
  - Pruritus [Unknown]
  - Flushing [Unknown]
  - Diarrhoea [Recovered/Resolved]
  - Headache [Recovered/Resolved]
  - Dyspnoea [Unknown]
  - Weight decreased [Unknown]
  - Contusion [Unknown]
  - Musculoskeletal chest pain [Unknown]
  - Product physical issue [Unknown]

NARRATIVE: CASE EVENT DATE: 20210601
